FAERS Safety Report 21845551 (Version 6)
Quarter: 2023Q1

REPORT INFORMATION
  Report Type: Spontaneous
  Country: US (occurrence: US)
  Receive Date: 20230111
  Receipt Date: 20230301
  Transmission Date: 20230417
  Serious: No
  Sender: FDA-Public Use
  Company Number: US-UNITED THERAPEUTICS-UNT-2022-031591

PATIENT
  Age: 63 Year
  Sex: Male
  Weight: 102.95 kg

DRUGS (12)
  1. REMODULIN [Suspect]
     Active Substance: TREPROSTINIL
     Indication: Pulmonary arterial hypertension
     Dosage: 0.007 ?G/KG (PHARMACY FILLED WITH 2.6 ML/CASSETTE AT PUMP RATE 18 MCL/HOUR), CONTINUING
     Route: 058
     Dates: start: 202212
  2. REMODULIN [Suspect]
     Active Substance: TREPROSTINIL
     Dosage: UNK, CONTINUING
     Route: 058
     Dates: start: 20221209
  3. REMODULIN [Suspect]
     Active Substance: TREPROSTINIL
     Indication: Pulmonary arterial hypertension
     Dosage: 0.015 ?G/KG (PHARMACY FILLED WITH 2.6 ML/CASSETTE AT PUMP RATE 19 MCL/HOUR), CONTINUING
     Route: 058
  4. REMODULIN [Suspect]
     Active Substance: TREPROSTINIL
     Dosage: 0.017 ?G/KG (PHARMACY FILLED WITH 3 ML/CASSETTE AT PUMP RATE 22 MCL/HOUR), CONTINUING
     Route: 058
  5. REMODULIN [Suspect]
     Active Substance: TREPROSTINIL
     Dosage: 0.025 ?G/KG (PHARMACY PREFILLED WITH 3ML/CASSETTE WITH PUMP RATE 32MCL/HOUR), CONTINUIN
     Route: 058
  6. REMODULIN [Suspect]
     Active Substance: TREPROSTINIL
     Dosage: 0.027 ?G/KG, CONTINUING  (REMUNITY PHARMACY PRE-FILLED WITH 3 ML/CASSETTE. REMUNITY PUMP RATE 34 MCL
     Route: 058
  7. REMODULIN [Suspect]
     Active Substance: TREPROSTINIL
     Indication: Pulmonary arterial hypertension
     Dosage: 0.025 ?G/KG (PHARMACY PREFILLED WITH 3ML/ PER CASSETTE; AT A PUMP RATE OF 32MCL/HOUR), CONTINUING
     Route: 058
  8. REMODULIN [Suspect]
     Active Substance: TREPROSTINIL
     Dosage: 0.029 ?G/KG (PHARMACY FILLED REMUNITY; PRE-FILLED WITH 1.8 ML PER CASSETTE; AT RATE OF 18 MCL/HOUR),
     Route: 058
  9. TYVASO [Suspect]
     Active Substance: TREPROSTINIL
     Indication: Pulmonary arterial hypertension
     Dosage: 72 ?G, QID (12 BREATHS)
  10. TYVASO [Suspect]
     Active Substance: TREPROSTINIL
     Dosage: 36 ?G, QID (6 BREATHS)
  11. TYVASO [Suspect]
     Active Substance: TREPROSTINIL
     Dosage: UNK
     Dates: start: 20170413
  12. ADEMPAS [Concomitant]
     Active Substance: RIOCIGUAT
     Indication: Product used for unknown indication
     Dosage: UNK
     Route: 065

REACTIONS (11)
  - Infusion site pain [Not Recovered/Not Resolved]
  - Infusion site erythema [Unknown]
  - Infusion site irritation [Unknown]
  - Nausea [Not Recovered/Not Resolved]
  - Device maintenance issue [Unknown]
  - Product distribution issue [Unknown]
  - Expired product administered [Unknown]
  - Infusion site discharge [Unknown]
  - Dizziness postural [Unknown]
  - Device power source issue [Recovered/Resolved]
  - Device power source issue [Recovered/Resolved]

NARRATIVE: CASE EVENT DATE: 20221201
